FAERS Safety Report 4939649-6 (Version None)
Quarter: 2006Q1

REPORT INFORMATION
  Report Type: 
  Country: None (occurrence: None)
  Receive Date: 20060307
  Receipt Date: 20060222
  Transmission Date: 20060701
  Serious: Yes (Other)
  Sender: FDA-Public Use
  Company Number: 2006013596

PATIENT
  Age: 56 Year
  Sex: Female

DRUGS (4)
  1. HALCION [Suspect]
     Indication: ANXIETY
     Dosage: 0.1875 MG (0.125 MG, 3 IN 1 D)
  2. XANAX [Suspect]
     Indication: ILL-DEFINED DISORDER
     Dosage: 0.25 MG (0.5 MG, 1 IN 1 D),
     Dates: start: 20060222
  3. PROPRANOLOL [Concomitant]
  4. LEVONORGESTREL AND ETHINYL ESTRADIOL [Concomitant]

REACTIONS (6)
  - DRUG DEPENDENCE [None]
  - DRUG WITHDRAWAL SYNDROME [None]
  - EUPHORIC MOOD [None]
  - FEELING DRUNK [None]
  - SOMNOLENCE [None]
  - THERAPY REGIMEN CHANGED [None]
